FAERS Safety Report 21022384 (Version 1)
Quarter: 2022Q2

REPORT INFORMATION
  Report Type: Spontaneous
  Country: HR (occurrence: HR)
  Receive Date: 20220629
  Receipt Date: 20220629
  Transmission Date: 20220721
  Serious: Yes (Other)
  Sender: FDA-Public Use
  Company Number: HR-PFIZER INC-202200823063

PATIENT
  Weight: 70 kg

DRUGS (8)
  1. INFLIXIMAB [Suspect]
     Active Substance: INFLIXIMAB
     Dosage: 5 MG/KG
     Route: 042
     Dates: start: 20171228
  2. INFLIXIMAB [Suspect]
     Active Substance: INFLIXIMAB
     Dosage: 5 MG/KG EVERY 4 WEEKS
     Dates: start: 20181004
  3. INFLIXIMAB [Suspect]
     Active Substance: INFLIXIMAB
     Dosage: 5 MG/KG EVERY 4 WEEKS
     Dates: start: 202205
  4. MEDROL [Suspect]
     Active Substance: METHYLPREDNISOLONE
     Dosage: 12 MG, 1X/DAY
     Route: 048
     Dates: start: 20171228
  5. AZATHIOPRINE [Suspect]
     Active Substance: AZATHIOPRINE
     Dosage: 100 MG
     Route: 048
     Dates: start: 20171228
  6. PENTASA [Suspect]
     Active Substance: MESALAMINE
     Dosage: 500 MG, 3TBL 3X/DAY
     Dates: start: 20171228
  7. PENTASA [Suspect]
     Active Substance: MESALAMINE
     Dosage: 500 MG, 3TBL 3X/DAY
     Dates: start: 20181004
  8. PENTASA [Suspect]
     Active Substance: MESALAMINE
     Dosage: 500 MG, 3TBL 3X/DAY
     Dates: start: 202205

REACTIONS (1)
  - Colitis ulcerative [Recovered/Resolved]

NARRATIVE: CASE EVENT DATE: 20180801
